FAERS Safety Report 18265315 (Version 1)
Quarter: 2020Q3

REPORT INFORMATION
  Report Type: Spontaneous
  Country: CN (occurrence: CN)
  Receive Date: 20200915
  Receipt Date: 20200915
  Transmission Date: 20201103
  Serious: Yes (Other)
  Sender: FDA-Public Use
  Company Number: CN-CHEPLA-C20202679

PATIENT
  Age: 8 Year
  Sex: Female

DRUGS (9)
  1. GANCICLOVIR. [Suspect]
     Active Substance: GANCICLOVIR
     Indication: CYTOMEGALOVIRUS INFECTION
  2. PYRAZINAMIDE. [Suspect]
     Active Substance: PYRAZINAMIDE
     Indication: PULMONARY TUBERCULOSIS
  3. LINEZOLID. [Suspect]
     Active Substance: LINEZOLID
  4. ISONIAZID. [Suspect]
     Active Substance: ISONIAZID
     Indication: PULMONARY TUBERCULOSIS
  5. IMMUNOGLOBULINS NOS [Suspect]
     Active Substance: IMMUNE GLOBULIN NOS
     Route: 042
  6. LEVOFLOXACIN. [Suspect]
     Active Substance: LEVOFLOXACIN
  7. STREPTOMYCIN [Suspect]
     Active Substance: STREPTOMYCIN SULFATE
  8. RIFAMPICIN [Suspect]
     Active Substance: RIFAMPIN
     Indication: PULMONARY TUBERCULOSIS
  9. FOSCARNET SODIUM. [Suspect]
     Active Substance: FOSCARNET SODIUM

REACTIONS (3)
  - Haemophagocytic lymphohistiocytosis [Unknown]
  - Product use issue [Unknown]
  - Haemorrhagic pneumonia [Recovering/Resolving]
